FAERS Safety Report 9219072 (Version 1)
Quarter: 2013Q2

REPORT INFORMATION
  Report Type: Spontaneous
  Country: GB (occurrence: GB)
  Receive Date: 20130409
  Receipt Date: 20130409
  Transmission Date: 20140414
  Serious: Yes (Disabling, Other)
  Sender: FDA-Public Use
  Company Number: PHFR2013GB002032

PATIENT
  Age: 69 Year
  Sex: Male

DRUGS (3)
  1. ACLASTA [Suspect]
     Dosage: 5 MG, UNK
     Route: 042
  2. PREDNISOLONE [Concomitant]
     Dosage: UNK
  3. THYROXINE [Concomitant]
     Dosage: UNK

REACTIONS (5)
  - Myositis [Recovering/Resolving]
  - Myalgia [Recovering/Resolving]
  - Mobility decreased [Recovering/Resolving]
  - Drug hypersensitivity [Recovering/Resolving]
  - C-reactive protein increased [Recovering/Resolving]
